FAERS Safety Report 7108755-2 (Version None)
Quarter: 2010Q4

REPORT INFORMATION
  Report Type: 
  Country: None (occurrence: None)
  Receive Date: 20101117
  Receipt Date: 20101104
  Transmission Date: 20110411
  Serious: Yes (Hospitalization, Other)
  Sender: FDA-Public Use
  Company Number: US-ACTELION-A-US2010-40144

PATIENT

DRUGS (5)
  1. BOSENTAN TABLET UNKNOWN US MG [Suspect]
     Indication: PULMONARY HYPERTENSION
     Dosage: UNK
     Route: 048
     Dates: start: 20100106, end: 20101110
  2. NAMENDA [Concomitant]
  3. ARICEPT [Concomitant]
  4. SPIRIVA [Concomitant]
  5. ACIPHEX [Concomitant]

REACTIONS (8)
  - AGITATION [None]
  - CONDITION AGGRAVATED [None]
  - DEMENTIA [None]
  - DIARRHOEA [None]
  - FALL [None]
  - NO THERAPEUTIC RESPONSE [None]
  - PELVIC FRACTURE [None]
  - SCREAMING [None]
